FAERS Safety Report 10033129 (Version 1)
Quarter: 2014Q1

REPORT INFORMATION
  Report Type: Spontaneous
  Country: IT (occurrence: IT)
  Receive Date: 20140324
  Receipt Date: 20140324
  Transmission Date: 20141002
  Serious: Yes (Other)
  Sender: FDA-Public Use
  Company Number: IT-ACTAVIS-2014-05254

PATIENT
  Age: 84 Year
  Sex: Female
  Weight: 76 kg

DRUGS (1)
  1. GABAPENTIN (UNKNOWN) [Suspect]
     Indication: NEUROPATHY PERIPHERAL
     Dosage: 200 MG, DAILY
     Route: 048
     Dates: start: 20140122, end: 20140211

REACTIONS (2)
  - Gait disturbance [Recovered/Resolved]
  - Myalgia [Recovered/Resolved]
